FAERS Safety Report 4697020-9 (Version None)
Quarter: 2005Q2

REPORT INFORMATION
  Report Type: 
  Country: None (occurrence: None)
  Receive Date: 20050620
  Receipt Date: 20050414
  Transmission Date: 20051028
  Serious: No
  Sender: FDA-Public Use
  Company Number: US-YAMANOUCHI-YPA20050194

PATIENT
  Sex: Female

DRUGS (6)
  1. VESICARE [Suspect]
     Indication: HYPERTONIC BLADDER
     Dosage: 5 MG QD PO
     Route: 048
     Dates: start: 20050201
  2. NECON [Concomitant]
  3. IMITREX ^CERENEX^ [Concomitant]
  4. ADVIL [Concomitant]
  5. TYLENOL [Concomitant]
  6. CALCIUM GLUCONATE [Concomitant]

REACTIONS (1)
  - BACK PAIN [None]
